FAERS Safety Report 24456559 (Version 2)
Quarter: 2024Q4

REPORT INFORMATION
  Report Type: Spontaneous
  Country: MX (occurrence: MX)
  Receive Date: 20241017
  Receipt Date: 20241018
  Transmission Date: 20250114
  Serious: No
  Sender: ROCHE
  Company Number: MX-ROCHE-3509036

PATIENT
  Age: 18 Year
  Sex: Female
  Weight: 60.0 kg

DRUGS (4)
  1. RITUXIMAB [Suspect]
     Active Substance: RITUXIMAB
     Indication: Multiple sclerosis
     Dosage: DOSING: 50 ML FOR TWO HOURS. 100 ML FOR ONE HOUR. REST FOR 4 HOURS, 2 AMPOULES OF 500MG
     Route: 042
  2. ACETAMINOPHEN [Concomitant]
     Active Substance: ACETAMINOPHEN
     Indication: Premedication
     Dosage: SINGLE DOSE
     Route: 048
  3. DIPHENHYDRAMINE [Concomitant]
     Active Substance: DIPHENHYDRAMINE
     Indication: Premedication
     Dosage: SINGLE DOSE
     Route: 042
  4. HYDROCORTISONE [Concomitant]
     Active Substance: HYDROCORTISONE
     Indication: Premedication
     Dosage: SINGLE DOSE
     Route: 042

REACTIONS (3)
  - Off label use [Unknown]
  - Tachycardia [Recovered/Resolved]
  - Ill-defined disorder [Recovered/Resolved]
